FAERS Safety Report 6378671-2 (Version None)
Quarter: 2009Q3

REPORT INFORMATION
  Report Type: 
  Country: None (occurrence: None)
  Receive Date: 20090923
  Receipt Date: 20090910
  Transmission Date: 20100115
  Serious: Yes (Hospitalization, Other)
  Sender: FDA-Public Use
  Company Number: 2009AL002499

PATIENT
  Age: 43 Year
  Sex: Male

DRUGS (21)
  1. DIGOXIN [Suspect]
     Dosage: 0.125 MG, DAILY, PO
     Route: 048
  2. LINICA [Concomitant]
  3. COREG [Concomitant]
  4. CAPTOPRIL [Concomitant]
  5. ALDACTONE [Concomitant]
  6. PROTONIX [Concomitant]
  7. LEVAQUIN [Concomitant]
  8. PREDNISONE [Concomitant]
  9. COREG [Concomitant]
  10. LISINOPRIL [Concomitant]
  11. LASIX [Concomitant]
  12. POTASSIUM CHLORIDE [Concomitant]
  13. XANAX [Concomitant]
  14. LEXAPRO [Concomitant]
  15. LYRICA [Concomitant]
  16. MS CONTIN [Concomitant]
  17. REGLAN [Concomitant]
  18. MUCINEX [Concomitant]
  19. ALBUTEROL [Concomitant]
  20. ATROVENT [Concomitant]
  21. KADIAN [Concomitant]

REACTIONS (11)
  - ABSCESS DRAINAGE [None]
  - ANXIETY [None]
  - BRONCHITIS [None]
  - BRONCHOPNEUMONIA [None]
  - CARDIAC FAILURE CONGESTIVE [None]
  - CHRONIC OBSTRUCTIVE PULMONARY DISEASE [None]
  - ECONOMIC PROBLEM [None]
  - HYPOTENSION [None]
  - INTERSTITIAL LUNG DISEASE [None]
  - MULTIPLE INJURIES [None]
  - VENTRICULAR TACHYCARDIA [None]
